FAERS Safety Report 15587497 (Version 2)
Quarter: 2018Q4

REPORT INFORMATION
  Report Type: Spontaneous
  Country: AU (occurrence: AU)
  Receive Date: 20181105
  Receipt Date: 20181106
  Transmission Date: 20190205
  Serious: Yes (Death, Other)
  Sender: FDA-Public Use
  Company Number: AU-009507513-1811AUS000816

PATIENT

DRUGS (1)
  1. LETERMOVIR [Suspect]
     Active Substance: LETERMOVIR

REACTIONS (1)
  - Death [Fatal]
